FAERS Safety Report 10801321 (Version 1)
Quarter: 2015Q1

REPORT INFORMATION
  Report Type: Report from Study
  Country: US (occurrence: US)
  Receive Date: 20150217
  Receipt Date: 20150217
  Transmission Date: 20150721
  Serious: Yes (Hospitalization)
  Sender: FDA-Public Use
  Company Number: US-AMGEN-USASL2015013595

PATIENT
  Age: 61 Year
  Sex: Male

DRUGS (1)
  1. ENBREL [Suspect]
     Active Substance: ETANERCEPT
     Indication: PSORIASIS
     Dosage: 25 MG, 2 TIMES/WK
     Route: 065
     Dates: start: 2007

REACTIONS (4)
  - Intestinal fistula [Recovered/Resolved]
  - Psoriasis [Not Recovered/Not Resolved]
  - Hepatitis B antibody [Not Recovered/Not Resolved]
  - Drug effect decreased [Not Recovered/Not Resolved]
